FAERS Safety Report 15932283 (Version 1)
Quarter: 2019Q1

REPORT INFORMATION
  Report Type: Spontaneous
  Country: US (occurrence: US)
  Receive Date: 20190117
  Receipt Date: 20190117
  Transmission Date: 20190417
  Serious: Yes (Hospitalization, Disabling, Other)
  Sender: FDA-Public Use
  Company Number: None

PATIENT
  Age: 68 Year
  Sex: Female

DRUGS (22)
  1. OZEMPIC [Suspect]
     Active Substance: SEMAGLUTIDE
     Indication: TYPE 2 DIABETES MELLITUS
     Dosage: ?          QUANTITY:0.5MG/1MG  10ML;?
     Dates: start: 201812
  2. OZEMPIC [Suspect]
     Active Substance: SEMAGLUTIDE
     Indication: OBESITY
     Dosage: ?          QUANTITY:0.5MG/1MG  10ML;?
     Dates: start: 201812
  3. PREDNISONE. [Concomitant]
     Active Substance: PREDNISONE
  4. NITROS [Concomitant]
  5. SAPHRIS [Concomitant]
     Active Substance: ASENAPINE MALEATE
  6. LEXAPRO [Concomitant]
     Active Substance: ESCITALOPRAM OXALATE
  7. KEFLEX [Concomitant]
     Active Substance: CEPHALEXIN
  8. COMPAZINE [Concomitant]
     Active Substance: PROCHLORPERAZINE MALEATE
  9. FLUVOXAMINE [Concomitant]
     Active Substance: FLUVOXAMINE
  10. OZEMPIC [Suspect]
     Active Substance: SEMAGLUTIDE
     Indication: OBESITY
  11. PATANASE [Concomitant]
     Active Substance: OLOPATADINE HYDROCHLORIDE
  12. ACYCLOVIR. [Concomitant]
     Active Substance: ACYCLOVIR
  13. PENICILLIN [Concomitant]
     Active Substance: PENICILLIN
  14. CECLOR [Concomitant]
     Active Substance: CEFACLOR
  15. MORPHINE [Concomitant]
     Active Substance: MORPHINE
  16. FLOVENT [Concomitant]
     Active Substance: FLUTICASONE PROPIONATE
  17. KOPENEX [Concomitant]
  18. VICODIN [Concomitant]
     Active Substance: ACETAMINOPHEN\HYDROCODONE BITARTRATE
  19. ETODOLAC/LODINE [Concomitant]
  20. TUSSI ORGANIDIN [Concomitant]
  21. ANTIVERT [Concomitant]
     Active Substance: MECLIZINE HYDROCHLORIDE
  22. LATUDA [Concomitant]
     Active Substance: LURASIDONE HYDROCHLORIDE

REACTIONS (1)
  - Abdominal pain upper [None]

NARRATIVE: CASE EVENT DATE: 201812
